FAERS Safety Report 6913749-3 (Version None)
Quarter: 2010Q3

REPORT INFORMATION
  Report Type: 
  Country: None (occurrence: None)
  Receive Date: 20100809
  Receipt Date: 20100729
  Transmission Date: 20110219
  Serious: Yes (Other)
  Sender: FDA-Public Use
  Company Number: US-BAYER-201029449NA

PATIENT
  Sex: Female

DRUGS (2)
  1. YASMIN [Suspect]
     Indication: PRODUCT USED FOR UNKNOWN INDICATION
     Route: 048
  2. NORETHINDRONE ACETATE AGYSTIN [Concomitant]

REACTIONS (5)
  - ABDOMINAL RIGIDITY [None]
  - DYSPEPSIA [None]
  - MIGRAINE [None]
  - MOOD SWINGS [None]
  - THROMBOSIS [None]
